FAERS Safety Report 17260753 (Version 1)
Quarter: 2020Q1

REPORT INFORMATION
  Report Type: Spontaneous
  Country: BR (occurrence: BR)
  Receive Date: 20200113
  Receipt Date: 20200113
  Transmission Date: 20200409
  Serious: Yes (Other)
  Sender: FDA-Public Use
  Company Number: BR-BRISTOL-MYERS SQUIBB COMPANY-BMS-2019-068910

PATIENT
  Age: 61 Year
  Sex: Male

DRUGS (1)
  1. ELIQUIS [Suspect]
     Active Substance: APIXABAN
     Indication: HYPERCOAGULATION
     Dosage: 5 MILLIGRAM
     Route: 065
     Dates: start: 2017

REACTIONS (3)
  - Intentional product use issue [Unknown]
  - Thrombosis [Unknown]
  - Arthropathy [Unknown]

NARRATIVE: CASE EVENT DATE: 201911
